FAERS Safety Report 20671384 (Version 2)
Quarter: 2022Q2

REPORT INFORMATION
  Report Type: Spontaneous
  Country: TR (occurrence: TR)
  Receive Date: 20220404
  Receipt Date: 20220406
  Transmission Date: 20220721
  Serious: Yes (Hospitalization)
  Sender: FDA-Public Use
  Company Number: TR-LUPIN PHARMACEUTICALS INC.-2022-04677

PATIENT
  Age: 53 Year
  Sex: Male

DRUGS (3)
  1. VANCOMYCIN [Suspect]
     Active Substance: VANCOMYCIN
     Indication: Clostridial sepsis
     Dosage: UNK
     Route: 065
  2. PIPERACILLIN SODIUM\TAZOBACTAM SODIUM [Suspect]
     Active Substance: PIPERACILLIN SODIUM\TAZOBACTAM SODIUM
     Indication: Clostridial sepsis
     Dosage: UNK
     Route: 065
  3. TENOFOVIR [Concomitant]
     Active Substance: TENOFOVIR
     Indication: Chronic hepatitis B
     Dosage: UNK
     Route: 065

REACTIONS (2)
  - Drug ineffective for unapproved indication [Unknown]
  - Off label use [Unknown]
